FAERS Safety Report 6228093-X (Version None)
Quarter: 2009Q2

REPORT INFORMATION
  Report Type: 
  Country: None (occurrence: None)
  Receive Date: 20090612
  Receipt Date: 20090601
  Transmission Date: 20091009
  Serious: Yes (Other)
  Sender: FDA-Public Use
  Company Number: US-JNJFOC-20090601397

PATIENT
  Age: 46 Year
  Sex: Female
  Weight: 56.7 kg

DRUGS (2)
  1. TYLENOL COLD HEAD CONGESTION NIGHTTIME COOL BURST [Suspect]
     Indication: SINUS CONGESTION
     Route: 048
  2. TYLENOL SINUS CONGESTION + PAIN DAYTIME COOL BURST [Suspect]
     Indication: NASOPHARYNGITIS
     Route: 048

REACTIONS (6)
  - DIZZINESS [None]
  - DRUG INEFFECTIVE [None]
  - FORMICATION [None]
  - HEAD DISCOMFORT [None]
  - HEART RATE INCREASED [None]
  - LOSS OF CONSCIOUSNESS [None]
